FAERS Safety Report 9494119 (Version 2)
Quarter: 2013Q3

REPORT INFORMATION
  Report Type: Spontaneous
  Country: US (occurrence: None)
  Receive Date: 20130827
  Receipt Date: 20130926
  Transmission Date: 20140515
  Serious: Yes (Other)
  Sender: FDA-Public Use
  Company Number: GER/UKI/13/0034168

PATIENT
  Sex: Female

DRUGS (2)
  1. SILDENAFIL (SILDENAFIL) [Suspect]
     Indication: PULMONARY HYPERTENSION
     Route: 048
  2. MULTIVITAMINS WITH IRON (ONE DAILY /01824901/) [Concomitant]

REACTIONS (5)
  - Haemorrhage [None]
  - Dyspnoea [None]
  - Off label use [None]
  - Uterine leiomyoma [None]
  - Product substitution issue [None]
